FAERS Safety Report 7880722 (Version 5)
Quarter: 2012Q4

REPORT INFORMATION
  Report Type: 
  Country: US (occurrence: US)
  Receive Date: 20110331
  Receipt Date: 20120928
  Transmission Date: 20130627
  Serious: Yes (Other)
  Sender: FDA-Public Use
  Company Number: US-BAYER-2011-027315

PATIENT
  Age: 24 Year
  Sex: Female
  Weight: 97.51 kg

DRUGS (9)
  1. YASMIN [Suspect]
     Indication: CONTRACEPTION
     Dosage: UNK
     Dates: start: 200403, end: 200406
  2. YASMIN [Suspect]
     Indication: POLYCYSTIC OVARIES
  3. EFFEXOR [Concomitant]
     Indication: DEPRESSION
  4. DOXYCYCLINE [Concomitant]
     Dosage: 100 mg, BID
     Route: 048
     Dates: start: 200405
  5. PERCOCET [Concomitant]
     Dosage: 5/325 mg
     Dates: start: 200405
  6. SKELAXIN [Concomitant]
     Dosage: 800 mg, UNK
     Dates: start: 20040628
  7. HYDROCODONE W/APAP [Concomitant]
     Dosage: 5/500 mg
     Dates: start: 20040616
  8. PROMETHAZINE [PROMETHAZINE] [Concomitant]
     Dosage: 25 mg, UNK
     Dates: start: 20040603
  9. MAXAIR [Concomitant]
     Indication: ASTHMA

REACTIONS (16)
  - Deep vein thrombosis [None]
  - Poor peripheral circulation [None]
  - Pain in extremity [None]
  - Thrombosis [None]
  - Thrombosis [None]
  - Feeling cold [None]
  - Joint swelling [None]
  - Malaise [None]
  - Hypoaesthesia [None]
  - Weight decreased [None]
  - Fear [None]
  - Injury [None]
  - Anxiety [None]
  - General physical health deterioration [None]
  - Anhedonia [None]
  - Emotional distress [None]
